FAERS Safety Report 7236532-0 (Version None)
Quarter: 2011Q1

REPORT INFORMATION
  Report Type: 
  Country: None (occurrence: None)
  Receive Date: 20110120
  Receipt Date: 20110120
  Transmission Date: 20110831
  Serious: Yes (Other)
  Sender: FDA-Public Use
  Company Number: JP-AMGEN-JPNCT2010005591

PATIENT

DRUGS (14)
  1. CALCICOL [Concomitant]
     Route: 042
  2. FLUOROURACIL [Suspect]
     Route: 040
     Dates: start: 20100810, end: 20100907
  3. MAGNESIUM SULFATE CORRECTIVE INJECTION [Concomitant]
     Route: 042
  4. CALCIUM LEVOFOLINATE [Concomitant]
     Indication: COLORECTAL CANCER
     Route: 041
     Dates: start: 20100629, end: 20100727
  5. CALCIUM LEVOFOLINATE [Concomitant]
     Route: 041
     Dates: start: 20100810, end: 20100907
  6. DECADRON [Concomitant]
     Route: 042
  7. FLUOROURACIL [Suspect]
     Indication: COLORECTAL CANCER
     Route: 040
     Dates: start: 20100629, end: 20100727
  8. PANITUMUMAB [Suspect]
     Dosage: 4.8 MG/KG, Q2WK
     Route: 041
     Dates: start: 20100810, end: 20100907
  9. FLUOROURACIL [Suspect]
     Route: 041
     Dates: start: 20100629, end: 20100727
  10. PANITUMUMAB [Suspect]
     Indication: COLORECTAL CANCER
     Dosage: 6 MG/KG, Q2WK
     Route: 041
     Dates: start: 20100629, end: 20100727
  11. KYTRIL [Concomitant]
     Route: 042
  12. ZOLADEX [Concomitant]
     Route: 042
  13. FLUOROURACIL [Suspect]
     Route: 041
     Dates: start: 20100810, end: 20100907
  14. ELPLAT [Suspect]
     Indication: COLORECTAL CANCER
     Route: 041
     Dates: start: 20100629, end: 20100727

REACTIONS (8)
  - RESPIRATORY DISORDER [None]
  - NASAL MUCOSAL DISORDER [None]
  - RASH [None]
  - STOMATITIS [None]
  - RASH GENERALISED [None]
  - DERMATITIS ACNEIFORM [None]
  - FLUSHING [None]
  - URTICARIA [None]
